FAERS Safety Report 12116221 (Version 2)
Quarter: 2016Q4

REPORT INFORMATION
  Report Type: Spontaneous
  Country: US (occurrence: US)
  Receive Date: 20160225
  Receipt Date: 20161118
  Transmission Date: 20170206
  Serious: No
  Sender: FDA-Public Use
  Company Number: US-MYLANLABS-2015M1038498

PATIENT
  Sex: Male

DRUGS (2)
  1. METOPROLOL. [Suspect]
     Active Substance: METOPROLOL
     Indication: HYPERTENSION
     Dosage: UNK
  2. DOXAZOSIN TABLETS, USP [Suspect]
     Active Substance: DOXAZOSIN\DOXAZOSIN MESYLATE
     Indication: PROSTATOMEGALY
     Dosage: 2 MG, QD
     Route: 048

REACTIONS (1)
  - Chest discomfort [Not Recovered/Not Resolved]

NARRATIVE: CASE EVENT DATE: 2014
